FAERS Safety Report 6276470-3 (Version None)
Quarter: 2009Q3

REPORT INFORMATION
  Report Type: 
  Country: None (occurrence: None)
  Receive Date: 20090722
  Receipt Date: 20090710
  Transmission Date: 20100115
  Serious: Yes (Other)
  Sender: FDA-Public Use
  Company Number: US-MYLANLABS-2009S1009686

PATIENT
  Age: 54 Year
  Sex: Female
  Weight: 59.42 kg

DRUGS (5)
  1. NITROFURANTOIN MONOHYDRATE/MACROCRYSTALS CAPSULES [Suspect]
     Indication: CYSTITIS
     Route: 048
     Dates: start: 20090527, end: 20090527
  2. NITROFURANTOIN MONOHYDRATE/MACROCRYSTALS CAPSULES [Suspect]
     Indication: URINARY TRACT PAIN
     Route: 048
     Dates: start: 20090527, end: 20090527
  3. TAMOXIFEN CITRATE [Concomitant]
     Indication: PROPHYLAXIS
     Dosage: FAMILY HISTORY OF BREAST CANCER
     Route: 048
     Dates: start: 20080201
  4. ELAVIL [Concomitant]
     Indication: FATIGUE
     Route: 048
  5. ALPRAZOLAM [Concomitant]
     Indication: INSOMNIA
     Route: 048

REACTIONS (2)
  - EXPIRED DRUG ADMINISTERED [None]
  - HYPERSENSITIVITY [None]
